FAERS Safety Report 9335310 (Version 2)
Quarter: 2013Q2

REPORT INFORMATION
  Report Type: Spontaneous
  Country: CA (occurrence: CA)
  Receive Date: 20130606
  Receipt Date: 20130607
  Transmission Date: 20140414
  Serious: Yes (Other)
  Sender: FDA-Public Use
  Company Number: CA-ROCHE-1232482

PATIENT
  Age: 65 Year
  Sex: Male
  Weight: 79.8 kg

DRUGS (2)
  1. AVASTIN [Suspect]
     Indication: NEUROENDOCRINE CARCINOMA
     Route: 042
     Dates: start: 20110429, end: 201305
  2. TEMSIROLIMUS [Suspect]
     Indication: NEUROENDOCRINE CARCINOMA
     Route: 065
     Dates: start: 20110429, end: 201305

REACTIONS (5)
  - Hypertension [Not Recovered/Not Resolved]
  - Blood cholesterol increased [Unknown]
  - Proteinuria [Unknown]
  - Disease progression [Unknown]
  - Drug effect decreased [Unknown]
